FAERS Safety Report 8537104-8 (Version None)
Quarter: 2012Q3

REPORT INFORMATION
  Report Type: 
  Country: None (occurrence: None)
  Receive Date: 20120725
  Receipt Date: 20120716
  Transmission Date: 20120928
  Serious: Yes (Hospitalization)
  Sender: FDA-Public Use
  Company Number: US-BAYER-2012-072623

PATIENT
  Age: 26 Year
  Sex: Female
  Weight: 87.81 kg

DRUGS (14)
  1. ASPIRIN [Concomitant]
  2. HYDROCODONE BITARTRATE + ACETAMINOPHEN [Concomitant]
     Dosage: 5 MG-500 MG
     Route: 048
  3. MAXAIR [Concomitant]
     Dosage: 200 ?G/INHALATION
     Route: 045
  4. ADVAIR DISKUS 100/50 [Concomitant]
     Dosage: 500 MCG-50 MCG/DOSE DISK
     Route: 045
  5. PERCOCET [Concomitant]
     Indication: PAIN
  6. HYDROXYZINE [Concomitant]
  7. TEMOVATE [Concomitant]
     Dosage: 0.05 % APPLY 2 TIMES PER DAY
     Route: 061
  8. CLARITIN [Concomitant]
     Dosage: 10 MG, UNK
     Route: 048
  9. DOVONEX [Concomitant]
     Dosage: 0.005 %, BID TO AFFECTED AREAS
     Route: 061
  10. VICODIN [Concomitant]
  11. YAZ [Suspect]
  12. DROSPIRENONE AND ETHINYL ESTRADIOL [Suspect]
  13. VISTARIL [Concomitant]
  14. LORATADINE [Concomitant]

REACTIONS (2)
  - DEEP VEIN THROMBOSIS [None]
  - PULMONARY EMBOLISM [None]
